FAERS Safety Report 12071806 (Version 1)
Quarter: 2016Q1

REPORT INFORMATION
  Report Type: Spontaneous
  Country: US (occurrence: US)
  Receive Date: 20160212
  Receipt Date: 20160212
  Transmission Date: 20160526
  Serious: Yes (Other)
  Sender: FDA-Public Use
  Company Number: US-STRIDES ARCOLAB LIMITED-2015SP002638

PATIENT

DRUGS (3)
  1. TACROLIMUS. [Suspect]
     Active Substance: TACROLIMUS
     Indication: IMMUNOSUPPRESSION
     Dosage: 0.1 MG/KG, BID
  2. TACROLIMUS. [Interacting]
     Active Substance: TACROLIMUS
     Dosage: 0.11 MG/KG, BID
  3. NICARDIPINE [Interacting]
     Active Substance: NICARDIPINE
     Indication: HYPERTENSION
     Dosage: UNK
     Route: 040

REACTIONS (2)
  - Drug interaction [Unknown]
  - Drug level above therapeutic [Recovered/Resolved]
